FAERS Safety Report 14919285 (Version 1)
Quarter: 2018Q2

REPORT INFORMATION
  Report Type: Spontaneous
  Country: HR (occurrence: HR)
  Receive Date: 20180521
  Receipt Date: 20180521
  Transmission Date: 20180711
  Serious: Yes (Hospitalization)
  Sender: FDA-Public Use
  Company Number: HR-JNJFOC-20180520368

PATIENT
  Age: 80 Year
  Sex: Female
  Weight: 68 kg

DRUGS (4)
  1. BISOPROLOL FUMARATE. [Concomitant]
     Active Substance: BISOPROLOL FUMARATE
     Route: 048
  2. LISINOPRIL DIHYDRATE [Concomitant]
     Active Substance: LISINOPRIL
     Route: 048
  3. LANITOP [Concomitant]
     Active Substance: METILDIGOXIN
     Route: 048
  4. XARELTO [Suspect]
     Active Substance: RIVAROXABAN
     Indication: ATRIAL FIBRILLATION
     Route: 048
     Dates: start: 20180214

REACTIONS (2)
  - Haemorrhagic stroke [Not Recovered/Not Resolved]
  - Hemiplegia [Not Recovered/Not Resolved]

NARRATIVE: CASE EVENT DATE: 20180409
